FAERS Safety Report 9236939 (Version 2)
Quarter: 2013Q4

REPORT INFORMATION
  Report Type: Spontaneous
  Country: DK (occurrence: None)
  Receive Date: 20130415
  Receipt Date: 20131112
  Transmission Date: 20140711
  Serious: Yes (Other)
  Sender: FDA-Public Use
  Company Number: SYM-2013-02493

PATIENT
  Age: 65 Year
  Sex: Female

DRUGS (15)
  1. METRONIDAZOLE [Suspect]
     Indication: PRODUCT USED FOR UNKNOWN INDICATION
  2. CEFUROXIME [Suspect]
     Indication: PNEUMONIA
     Dates: end: 20090810
  3. RISPERDAL [Concomitant]
  4. THIAMINE (THIAMINE) (THIAMINE) [Concomitant]
  5. B-COMBIN (B-XOMPLEX) (PYRIDOXINE HYDROCHLORIDE, THIAMINE HYDROCHLORIDE, RIBOFLAVIN, NICOTINAMIDE, CALCIUM PANTOTHENATE) [Concomitant]
  6. POTASSIUM CHLORIDE (POTASSIUM CHLORIDE) (POTASSIUM CHLORIDE) [Concomitant]
  7. PLAVIX (CLOPIDROGEL BISULFATE) (CLOPIDOGREL BISULFATE) [Concomitant]
  8. ASPIRIN (ACETYLSALICYLIC ACID) (ACETYLSALICYLIC ACID) [Concomitant]
  9. CIPROFLOXACIN (CIPROFLOXACIN) (CIPROFLOXACIN) [Concomitant]
  10. PARACETAMOL (PARACETAMOL) (PARACETAMOL) [Concomitant]
  11. PHENOBARBITAL (PHENOBARBITAL) (PHENOBARBITAL) [Concomitant]
  12. PANTOPRAZOLE (PANTROPRAZOLE) (PANTOPRAZOLE) [Concomitant]
  13. FERRO DURETTER (FERROUS SULFATE) (FERROUS SULFATE) [Concomitant]
  14. FURIX (FUROSEMIDE) (FUROSEMIDE) [Concomitant]
  15. BIOCLAVID [Suspect]
     Indication: PRODUCT USED FOR UNKNOWN INDICATION

REACTIONS (12)
  - Fungal skin infection [None]
  - Injury [None]
  - Thrombosis [None]
  - Cardiac arrest [None]
  - Sternal fracture [None]
  - Haemorrhage [None]
  - Cardiac perforation [None]
  - Pneumonia [None]
  - Hallucination [None]
  - Delusion [None]
  - Dysbacteriosis [None]
  - Gastrooesophageal reflux disease [None]
